FAERS Safety Report 9236571 (Version 1)
Quarter: 2013Q2

REPORT INFORMATION
  Report Type: Spontaneous
  Country: US (occurrence: None)
  Receive Date: 20130403
  Receipt Date: 20130403
  Transmission Date: 20140414
  Serious: Yes (Death)
  Sender: FDA-Public Use
  Company Number: 2013035234

PATIENT
  Sex: Male
  Weight: 78.47 kg

DRUGS (25)
  1. HIZENTRA (IMMUNOGLOBULIN HUMAN NORMAL) [Suspect]
     Indication: IMMUNODEFICIENCY COMMON VARIABLE
     Dosage: (18 G, 1X/WEEK, OVER 1-2 HOURS SUBCUTANEOUS)
     Route: 058
  2. ACETAMINOPHEN (PARACETAMOL) [Concomitant]
  3. DIPHENHYDRAMINE (DIPHENHYDRAMINE) [Concomitant]
  4. LIDOCAINE/PRILOCAINE (EMLA /00675501/) [Concomitant]
  5. EPI-PEN (EPINEPHRINE) [Concomitant]
  6. DILAUDID (HYDROMORPHONE HYDROCHLORIDE) [Concomitant]
  7. CLOTRIMAZOLE (CLOTRIMAZOLE) [Concomitant]
  8. OXYGEN (OXYGEN) [Concomitant]
  9. KLONOPIN (CLONAZEPAM) [Concomitant]
  10. XANAX (ALPRAZOLAM) [Concomitant]
  11. PREDNISONE (PREDNISONE) [Concomitant]
  12. ALLEGRA (FEXOFENADINE) [Concomitant]
  13. ADVAIR (SERETIDE /01420901/) [Concomitant]
  14. TRAZODONE (TRAZODONE) [Concomitant]
  15. NEXIUM (ESOMEPRAZOLE MAGNESIUM) [Concomitant]
  16. DILTIAZEM [Concomitant]
  17. NAMENDA (MEMANTINE HYDROCHLORIDE) [Concomitant]
  18. FLOMAX (TAMSULOSIN HYDROCHLORIDE) [Concomitant]
  19. SPIRIVA (TIOTROPIUM BROMIDE) [Concomitant]
  20. MIRAPEX (PRAMIPEXOLE DIHYDROCHLORIDE) [Concomitant]
  21. PROZAC (FLUOXETINE HYDROCHLORIDE) [Concomitant]
  22. BACTRIM (BACTRIM /00086101/) [Concomitant]
  23. LORTAB (LORTAB /01744401/) [Concomitant]
  24. HYCODAN (HYDROCODONE BITARTRATE) [Concomitant]
  25. PARAFON (CHLORZOXAZONE) [Concomitant]

REACTIONS (1)
  - Death [None]
